FAERS Safety Report 7804085-1 (Version None)
Quarter: 2011Q4

REPORT INFORMATION
  Report Type: 
  Country: None (occurrence: None)
  Receive Date: 20111010
  Receipt Date: 20111003
  Transmission Date: 20120403
  Serious: Yes (Other)
  Sender: FDA-Public Use
  Company Number: AU-PFIZER INC-2011236193

PATIENT

DRUGS (3)
  1. XALATAN [Suspect]
     Dosage: UNK
  2. TIMOLOL [Suspect]
     Dosage: UNK
  3. TRAVATAN [Suspect]
     Dosage: UNK

REACTIONS (6)
  - INTRAOCULAR PRESSURE INCREASED [None]
  - EYE PRURITUS [None]
  - MIGRAINE [None]
  - OCULAR HYPERAEMIA [None]
  - COUGH [None]
  - DRY EYE [None]
